FAERS Safety Report 14582761 (Version 1)
Quarter: 2018Q1

REPORT INFORMATION
  Report Type: Report from Study
  Country: MX (occurrence: MX)
  Receive Date: 20180228
  Receipt Date: 20180228
  Transmission Date: 20180509
  Serious: Yes (Other)
  Sender: FDA-Public Use
  Company Number: MX-BAYER-2018-033738

PATIENT
  Age: 62 Year
  Sex: Male

DRUGS (3)
  1. NEXAVAR [Suspect]
     Active Substance: SORAFENIB
     Indication: RENAL CELL CARCINOMA
     Dosage: 400 MG, BID
     Dates: start: 20160226
  2. BEPANTHEN (DEXPANTHENOL) [Suspect]
     Active Substance: DEXPANTHENOL
     Indication: ANORECTAL DISCOMFORT
     Dosage: UNK
     Dates: start: 201802
  3. PARACETAMOL W/TRAMADOL [Concomitant]
     Dosage: UNK

REACTIONS (2)
  - Anal injury [Recovering/Resolving]
  - Product use in unapproved indication [Recovering/Resolving]

NARRATIVE: CASE EVENT DATE: 20180212
